FAERS Safety Report 18357200 (Version 1)
Quarter: 2020Q4

REPORT INFORMATION
  Report Type: Spontaneous
  Country: US (occurrence: US)
  Receive Date: 20201007
  Receipt Date: 20201007
  Transmission Date: 20210114
  Serious: No
  Sender: FDA-Public Use
  Company Number: US-BAUSCH-BL-2020-027121

PATIENT
  Sex: Female

DRUGS (2)
  1. TRETINOIN GEL 0.01% [Suspect]
     Active Substance: TRETINOIN
     Indication: ACNE
     Route: 061
  2. TRETINOIN GEL 0.025% [Suspect]
     Active Substance: TRETINOIN
     Indication: ACNE
     Route: 061

REACTIONS (3)
  - Sensitive skin [Unknown]
  - Skin irritation [Unknown]
  - Skin burning sensation [Unknown]
